FAERS Safety Report 21560862 (Version 8)
Quarter: 2024Q4

REPORT INFORMATION
  Report Type: Report from Study
  Country: US (occurrence: US)
  Receive Date: 20221107
  Receipt Date: 20241218
  Transmission Date: 20250115
  Serious: Yes (Other)
  Sender: TAKEDA
  Company Number: US-TAKEDA-2021TUS066465

PATIENT
  Sex: Female

DRUGS (3)
  1. HUMAN IMMUNOGLOBULIN G [Suspect]
     Active Substance: HUMAN IMMUNOGLOBULIN G
     Indication: Immunodeficiency common variable
     Dosage: 45 GRAM, MONTHLY
  2. HUMAN IMMUNOGLOBULIN G [Suspect]
     Active Substance: HUMAN IMMUNOGLOBULIN G
     Indication: Primary immunodeficiency syndrome
  3. COVID-19 VACCINE NOS [Suspect]
     Active Substance: COVID-19 VACCINE
     Indication: COVID-19 immunisation
     Dosage: UNK

REACTIONS (20)
  - Bronchiectasis [Unknown]
  - Thyroid mass [Unknown]
  - Incorrect drug administration rate [Unknown]
  - Malaise [Unknown]
  - Fall [Unknown]
  - Vitreous floaters [Unknown]
  - Neck pain [Not Recovered/Not Resolved]
  - Nervous system disorder [Unknown]
  - Nodule [Unknown]
  - Injection site reaction [Unknown]
  - Neuralgia [Unknown]
  - Injection site erythema [Unknown]
  - Sinusitis [Recovering/Resolving]
  - Asthma [Unknown]
  - Vision blurred [Unknown]
  - Contusion [Unknown]
  - Back pain [Unknown]
  - Cough [Unknown]
  - Vomiting [Unknown]
  - Diarrhoea [Unknown]
